FAERS Safety Report 9258361 (Version 1)
Quarter: 2013Q2

REPORT INFORMATION
  Report Type: Spontaneous
  Country: DE (occurrence: DE)
  Receive Date: 20130426
  Receipt Date: 20130426
  Transmission Date: 20140414
  Serious: Yes (Hospitalization)
  Sender: FDA-Public Use
  Company Number: GXKR2013DE001596

PATIENT
  Sex: 0

DRUGS (1)
  1. CIPROFLOXACIN [Suspect]
     Indication: INFECTION PROPHYLAXIS
     Dosage: 2-3 TIMES DAILY 400 MG
     Route: 042

REACTIONS (5)
  - Vessel puncture site thrombosis [Unknown]
  - Vessel puncture site reaction [Unknown]
  - Vessel puncture site pain [Unknown]
  - Vessel puncture site swelling [Unknown]
  - Infusion site mobility decreased [Unknown]
